FAERS Safety Report 7004887-8 (Version None)
Quarter: 2010Q3

REPORT INFORMATION
  Report Type: 
  Country: None (occurrence: None)
  Receive Date: 20100917
  Receipt Date: 20100902
  Transmission Date: 20110219
  Serious: Yes (Life-Threatening, Hospitalization)
  Sender: FDA-Public Use
  Company Number: 2010AP001885

PATIENT
  Age: 88 Year
  Sex: Female

DRUGS (9)
  1. RISPERIDONE [Suspect]
     Indication: SENILE PSYCHOSIS
     Dosage: 1.5 MG; QD PO
     Route: 048
     Dates: start: 20100728
  2. RISPERIDONE [Suspect]
     Indication: SENILE PSYCHOSIS
     Dosage: 1.5 MG; QD PO
     Route: 048
     Dates: start: 20100728
  3. BUMETANIDE [Suspect]
     Indication: PULMONARY OEDEMA
     Dosage: 1 MG; BID PO
     Route: 048
     Dates: start: 20100813, end: 20100814
  4. DOXAZOSIN MESYLATE [Concomitant]
  5. AMLODIPINE [Concomitant]
  6. FLOXACILLIN SODIUM [Concomitant]
  7. FUROSEMIDE [Concomitant]
  8. MOXONIDINE (MOXONIDINE) [Concomitant]
  9. ZOPICLONE (ZOPICLONE) [Concomitant]

REACTIONS (7)
  - ASTHENIA [None]
  - BRADYCARDIA [None]
  - HYPOTENSION [None]
  - HYPOTHERMIA [None]
  - LIP SWELLING [None]
  - MALAISE [None]
  - TACHYPNOEA [None]
